FAERS Safety Report 8882847 (Version 4)
Quarter: 2013Q1

REPORT INFORMATION
  Report Type: Spontaneous
  Country: US (occurrence: US)
  Receive Date: 20121103
  Receipt Date: 20130222
  Transmission Date: 20140127
  Serious: No
  Sender: FDA-Public Use
  Company Number: US-009507513-1210USA012896

PATIENT
  Sex: Female
  Weight: 68.94 kg

DRUGS (1)
  1. IMPLANON [Suspect]
     Indication: CONTRACEPTION
     Dosage: UNK
     Dates: start: 20120521, end: 20120920

REACTIONS (2)
  - Amenorrhoea [Unknown]
  - Exposure during pregnancy [Unknown]
